FAERS Safety Report 4370013-7 (Version None)
Quarter: 2004Q2

REPORT INFORMATION
  Report Type: 
  Country: None (occurrence: None)
  Receive Date: 20040603
  Receipt Date: 20040519
  Transmission Date: 20050107
  Serious: Yes (Other)
  Sender: FDA-Public Use
  Company Number: PHBS2004JP07236

PATIENT
  Age: 25 Year
  Sex: Male

DRUGS (3)
  1. VOLTAREN [Suspect]
     Route: 048
  2. DEPAS [Suspect]
     Route: 048
  3. GASTER [Suspect]

REACTIONS (5)
  - ASTHENIA [None]
  - BLOOD CREATINE PHOSPHOKINASE INCREASED [None]
  - NUCLEAR MAGNETIC RESONANCE IMAGING ABNORMAL [None]
  - PAIN IN EXTREMITY [None]
  - RHABDOMYOLYSIS [None]
